FAERS Safety Report 6805423-9 (Version None)
Quarter: 2010Q2

REPORT INFORMATION
  Report Type: 
  Country: None (occurrence: None)
  Receive Date: 20100628
  Receipt Date: 20071114
  Transmission Date: 20101027
  Serious: No
  Sender: FDA-Public Use
  Company Number: US-PFIZER INC-2007096075

PATIENT

DRUGS (1)
  1. GENOTROPIN [Suspect]

REACTIONS (3)
  - DYSGEUSIA [None]
  - GINGIVAL BLEEDING [None]
  - PLATELET COUNT DECREASED [None]
